APPROVED DRUG PRODUCT: BETAMETHASONE DIPROPIONATE
Active Ingredient: BETAMETHASONE DIPROPIONATE
Strength: EQ 0.05% BASE
Dosage Form/Route: CREAM, AUGMENTED;TOPICAL
Application: A078930 | Product #001
Applicant: GLENMARK PHARMACEUTICALS INC USA
Approved: Sep 23, 2008 | RLD: No | RS: No | Type: DISCN